FAERS Safety Report 9832706 (Version 1)
Quarter: 2014Q1

REPORT INFORMATION
  Report Type: Spontaneous
  Country: US (occurrence: US)
  Receive Date: 20140121
  Receipt Date: 20140121
  Transmission Date: 20141002
  Serious: Yes (Other)
  Sender: FDA-Public Use
  Company Number: US-ACTAVIS-2014-00190

PATIENT
  Sex: Female
  Weight: 87 kg

DRUGS (1)
  1. URSODIOL (WATSON LABORATORIES) [Suspect]
     Indication: BILIARY CIRRHOSIS PRIMARY
     Dosage: 2 DF, DAILY
     Route: 048
     Dates: start: 20130918

REACTIONS (6)
  - Hepatomegaly [Recovered/Resolved]
  - Abdominal discomfort [Recovered/Resolved]
  - Gastrointestinal sounds abnormal [Recovered/Resolved]
  - Diarrhoea [Recovered/Resolved]
  - Gastrooesophageal reflux disease [Recovered/Resolved]
  - Haemorrhoids [Recovered/Resolved]
